FAERS Safety Report 25585365 (Version 1)
Quarter: 2025Q3

REPORT INFORMATION
  Report Type: Spontaneous
  Country: US (occurrence: None)
  Receive Date: 20250718
  Receipt Date: 20250718
  Transmission Date: 20251021
  Serious: No
  Sender: FDA-CTU
  Company Number: None

PATIENT
  Age: 78 Year
  Weight: 44.1 kg

DRUGS (4)
  1. BISACODYL [Suspect]
     Active Substance: BISACODYL
     Indication: Constipation
     Route: 054
     Dates: start: 20150701
  2. ALENDRONATE [Concomitant]
     Active Substance: ALENDRONATE SODIUM
  3. EZETIMIBE [Concomitant]
     Active Substance: EZETIMIBE
  4. SOLUBLE FIBER [Concomitant]
     Active Substance: METHYLCELLULOSE (4000 CPS)

REACTIONS (1)
  - Adverse event [None]

NARRATIVE: CASE EVENT DATE: 20240901
